FAERS Safety Report 13724446 (Version 1)
Quarter: 2017Q3

REPORT INFORMATION
  Report Type: Spontaneous
  Country: US (occurrence: US)
  Receive Date: 20170706
  Receipt Date: 20170706
  Transmission Date: 20171127
  Serious: No
  Sender: FDA-Public Use
  Company Number: US-JNJFOC-20170519478

PATIENT
  Sex: Female

DRUGS (1)
  1. REMICADE [Suspect]
     Active Substance: INFLIXIMAB
     Indication: POLYARTHRITIS
     Route: 042
     Dates: start: 201403, end: 201406

REACTIONS (3)
  - Product use in unapproved indication [Unknown]
  - Nonspecific reaction [Unknown]
  - Off label use [Unknown]

NARRATIVE: CASE EVENT DATE: 2014
